FAERS Safety Report 9888572 (Version 1)
Quarter: 2014Q1

REPORT INFORMATION
  Report Type: Spontaneous
  Country: DK (occurrence: CH)
  Receive Date: 20140211
  Receipt Date: 20140211
  Transmission Date: 20141002
  Serious: Yes (Hospitalization)
  Sender: FDA-Public Use
  Company Number: CH-FRI-1000054059

PATIENT
  Sex: Female

DRUGS (12)
  1. ESCITALOPRAM [Suspect]
     Indication: ANXIETY DISORDER
     Dosage: 10 MG
     Route: 048
  2. FRAGMIN [Suspect]
     Indication: PROPHYLAXIS
     Dosage: 5000 IU
     Dates: start: 20131230
  3. BRILIQUE [Suspect]
     Indication: ACUTE MYOCARDIAL INFARCTION
     Route: 048
     Dates: start: 20140103, end: 201401
  4. ASPIRIN [Suspect]
     Indication: ACUTE MYOCARDIAL INFARCTION
     Route: 048
     Dates: start: 20140103
  5. KLACID [Suspect]
     Indication: POSTPARTUM SEPSIS
     Route: 042
     Dates: start: 20131231, end: 20140106
  6. TAZOBAC [Suspect]
     Dates: start: 20131230, end: 20140106
  7. AMARYL [Suspect]
  8. LYRICA [Concomitant]
  9. SERETIDE [Concomitant]
  10. VENTOLIN [Concomitant]
  11. TRUXAL [Concomitant]
  12. AMARYL [Concomitant]

REACTIONS (3)
  - Application site haemorrhage [Recovered/Resolved]
  - Haemoglobin decreased [Unknown]
  - Blood pressure decreased [Recovered/Resolved]
